FAERS Safety Report 6636577-5 (Version None)
Quarter: 2010Q1

REPORT INFORMATION
  Report Type: 
  Country: None (occurrence: None)
  Receive Date: 20100311
  Receipt Date: 20100302
  Transmission Date: 20100710
  Serious: Yes (Other)
  Sender: FDA-Public Use
  Company Number: 524872

PATIENT
  Sex: Female

DRUGS (4)
  1. PACLITAXEL [Suspect]
     Indication: BREAST CANCER
     Dosage: 80 MG/M2,1 WEEK, INTRAVENOUS
     Route: 042
  2. DOXORUBICIN HCL [Suspect]
     Indication: BREAST CANCER
     Dosage: 24 MG/M2,1 WEEK,
  3. CYCLOPHOSPHAMIDE [Suspect]
     Indication: BREAST CANCER
     Dosage: 60 MG/M2, ORAL
     Route: 048
  4. (GRANULOCYTE COLONY STIMULATING FACTOR) [Suspect]
     Indication: BREAST CANCER
     Dosage: 5 MCG/KG

REACTIONS (1)
  - MYELOID LEUKAEMIA [None]
